FAERS Safety Report 12785006 (Version 1)
Quarter: 2016Q3

REPORT INFORMATION
  Report Type: Report from Study
  Country: BR (occurrence: BR)
  Receive Date: 20160927
  Receipt Date: 20160927
  Transmission Date: 20161109
  Serious: Yes (Death, Hospitalization, Other)
  Sender: FDA-Public Use
  Company Number: BR-ALEXION-A201607219

PATIENT
  Age: 49 Year
  Sex: Male

DRUGS (2)
  1. SOLIRIS [Suspect]
     Active Substance: ECULIZUMAB
     Dosage: 900 MG, Q2W
     Route: 042
     Dates: start: 20150402
  2. SOLIRIS [Suspect]
     Active Substance: ECULIZUMAB
     Indication: PAROXYSMAL NOCTURNAL HAEMOGLOBINURIA
     Dosage: 600 MG, QW
     Route: 042
     Dates: start: 20150305, end: 20150326

REACTIONS (12)
  - Chromaturia [Fatal]
  - Cerebrovascular accident [Fatal]
  - Brain death [Fatal]
  - Haemorrhage [Fatal]
  - Hypotension [Fatal]
  - Thrombocytopenia [Unknown]
  - Pain [Unknown]
  - Respiratory tract infection [Fatal]
  - Renal failure [Fatal]
  - Jaundice [Fatal]
  - Asthenia [Unknown]
  - Sepsis [Fatal]

NARRATIVE: CASE EVENT DATE: 20160912
